FAERS Safety Report 10971823 (Version 1)
Quarter: 2015Q1

REPORT INFORMATION
  Report Type: Report from Study
  Country: RU (occurrence: RU)
  Receive Date: 20150331
  Receipt Date: 20150331
  Transmission Date: 20150721
  Serious: Yes (Other)
  Sender: FDA-Public Use
  Company Number: RU-BAYER-2015-063190

PATIENT
  Age: 43 Year
  Sex: Female

DRUGS (1)
  1. BETAFERON [Suspect]
     Active Substance: INTERFERON BETA-1B
     Indication: MULTIPLE SCLEROSIS
     Dosage: UNK
     Dates: start: 2007, end: 2010

REACTIONS (2)
  - Rectal cancer [None]
  - Iron deficiency anaemia [None]

NARRATIVE: CASE EVENT DATE: 2009
